FAERS Safety Report 4896581-4 (Version None)
Quarter: 2005Q4

REPORT INFORMATION
  Report Type: 
  Country: None (occurrence: None)
  Receive Date: 20051223
  Receipt Date: 20050911
  Transmission Date: 20060501
  Serious: Yes (Other)
  Sender: FDA-Public Use
  Company Number: 417670

PATIENT
  Age: 26 Year
  Sex: Female
  Weight: 81.6 kg

DRUGS (3)
  1. COPEGUS [Suspect]
     Indication: HEPATITIS C VIRUS
     Dosage: 2 PER DAY ORAL
     Route: 048
     Dates: start: 20050701, end: 20050915
  2. PEGASYS [Suspect]
     Indication: HEPATITIS C VIRUS
     Dosage: 180 MCG 1 PER WEEK SUBCUTANEOUS
     Route: 058
     Dates: start: 20050701, end: 20050915
  3. ZOLOFT [Concomitant]

REACTIONS (6)
  - BLOOD CHLORIDE INCREASED [None]
  - EMOTIONAL DISTRESS [None]
  - OVERDOSE [None]
  - PLATELET COUNT DECREASED [None]
  - RED BLOOD CELL SEDIMENTATION RATE INCREASED [None]
  - SUICIDE ATTEMPT [None]
